FAERS Safety Report 19461585 (Version 1)
Quarter: 2021Q2

REPORT INFORMATION
  Report Type: Spontaneous
  Country: FR (occurrence: FR)
  Receive Date: 20210625
  Receipt Date: 20210625
  Transmission Date: 20210717
  Serious: Yes (Other)
  Sender: FDA-Public Use
  Company Number: FR-ROCHE-2854243

PATIENT
  Age: 73 Year
  Sex: Male
  Weight: 73 kg

DRUGS (5)
  1. PROPOFOL. [Suspect]
     Active Substance: PROPOFOL
     Indication: INFECTION
     Dosage: 25 ML/H (1%)
     Route: 042
     Dates: start: 20210326
  2. IVERMECTINE [Suspect]
     Active Substance: IVERMECTIN
     Indication: COVID-19
     Route: 048
     Dates: start: 20210319, end: 20210319
  3. ACIDE CLAVULANIQUE [Suspect]
     Active Substance: CLAVULANIC ACID
     Indication: INFECTION
     Route: 048
     Dates: start: 20210316, end: 20210318
  4. ROACTEMRA [Suspect]
     Active Substance: TOCILIZUMAB
     Indication: COVID-19
     Route: 042
     Dates: start: 20210325, end: 20210325
  5. LOVENOX [Suspect]
     Active Substance: ENOXAPARIN SODIUM
     Indication: VASCULAR DISORDER PROPHYLAXIS
     Route: 058
     Dates: start: 20210318

REACTIONS (1)
  - Hepatocellular injury [Not Recovered/Not Resolved]
